FAERS Safety Report 9100640 (Version 9)
Quarter: 2015Q1

REPORT INFORMATION
  Report Type: Spontaneous
  Country: JP (occurrence: JP)
  Receive Date: 20130215
  Receipt Date: 20141119
  Transmission Date: 20150721
  Serious: Yes (Life-Threatening, Other)
  Sender: FDA-Public Use
  Company Number: JP-ROCHE-1190354

PATIENT
  Age: 63 Year
  Sex: Male

DRUGS (3)
  1. PEMETREXED [Concomitant]
     Active Substance: PEMETREXED
     Indication: NON-SMALL CELL LUNG CANCER
     Dosage: DOSAGE IS UNCERTAIN
     Route: 041
  2. CARBOPLATIN. [Concomitant]
     Active Substance: CARBOPLATIN
     Indication: NON-SMALL CELL LUNG CANCER
     Route: 041
  3. AVASTIN [Suspect]
     Active Substance: BEVACIZUMAB
     Indication: NON-SMALL CELL LUNG CANCER
     Route: 041
     Dates: start: 20130128, end: 20130128

REACTIONS (10)
  - Peritonitis [Unknown]
  - Portal venous gas [Unknown]
  - Intestinal ischaemia [Unknown]
  - Cytomegalovirus test positive [Unknown]
  - Ileal perforation [Recovered/Resolved]
  - Cytomegalovirus enterocolitis [Unknown]
  - Gastrointestinal necrosis [Unknown]
  - Short-bowel syndrome [Recovering/Resolving]
  - Gastrointestinal perforation [Recovering/Resolving]
  - Ulcer [Unknown]

NARRATIVE: CASE EVENT DATE: 201302
